FAERS Safety Report 4500303-6 (Version None)
Quarter: 2004Q4

REPORT INFORMATION
  Report Type: 
  Country: None (occurrence: None)
  Receive Date: 20041112
  Receipt Date: 20040315
  Transmission Date: 20050328
  Serious: Yes (Hospitalization)
  Sender: FDA-Public Use
  Company Number: US-MERCK-0403USA01343

PATIENT
  Age: 63 Year
  Sex: Male

DRUGS (7)
  1. VIOXX [Suspect]
     Indication: ARTHRALGIA
     Route: 048
     Dates: start: 20001127, end: 20010114
  2. VIOXX [Suspect]
     Route: 048
     Dates: start: 20010115, end: 20010115
  3. VIOXX [Suspect]
     Route: 048
     Dates: start: 20010116, end: 20010328
  4. ZOCOR [Concomitant]
     Route: 048
  5. PROTONIX [Concomitant]
     Route: 065
  6. LIPITOR [Concomitant]
     Route: 065
  7. PRINIVIL [Concomitant]
     Route: 048

REACTIONS (24)
  - ABDOMINAL PAIN [None]
  - ACQUIRED CLAW TOE [None]
  - BLOOD CHOLESTEROL INCREASED [None]
  - CEREBROVASCULAR ACCIDENT [None]
  - CHEST PAIN [None]
  - CHOLELITHIASIS [None]
  - DEHYDRATION [None]
  - DIVERTICULUM [None]
  - DYSPEPSIA [None]
  - DYSPNOEA [None]
  - EAR INFECTION [None]
  - EYE IRRITATION [None]
  - HAEMATURIA [None]
  - HEPATIC ENZYME INCREASED [None]
  - HYPERTENSION [None]
  - INGROWING NAIL [None]
  - INTESTINAL POLYP [None]
  - IRRITABLE BOWEL SYNDROME [None]
  - PERONEAL NERVE PALSY [None]
  - RASH PRURITIC [None]
  - RENAL IMPAIRMENT [None]
  - SKIN DISORDER [None]
  - SKIN LESION [None]
  - URINARY TRACT INFECTION [None]
